FAERS Safety Report 13943189 (Version 1)
Quarter: 2017Q3

REPORT INFORMATION
  Report Type: Spontaneous
  Country: JP (occurrence: JP)
  Receive Date: 20170906
  Receipt Date: 20170906
  Transmission Date: 20171128
  Serious: Yes (Other)
  Sender: FDA-Public Use
  Company Number: JP-MYLANLABS-2017M1055092

PATIENT
  Age: 6 Decade
  Sex: Female

DRUGS (4)
  1. TRASTUZUMAB. [Suspect]
     Active Substance: TRASTUZUMAB
     Dosage: 6MG/KG ALONE EVERY 3 WEEKS
     Route: 065
     Dates: end: 201409
  2. PACLITAXEL. [Suspect]
     Active Substance: PACLITAXEL
     Indication: BREAST CANCER STAGE IV
     Dosage: 90MG/M2
     Route: 065
     Dates: start: 201209, end: 201212
  3. TRASTUZUMAB. [Suspect]
     Active Substance: TRASTUZUMAB
     Indication: BREAST CANCER STAGE IV
     Dosage: 2MG/KG EVERY WEEK FOR 12 CYCLES
     Route: 065
     Dates: start: 201209, end: 201212
  4. ZOLEDRONIC ACID [Concomitant]
     Active Substance: ZOLEDRONIC ACID
     Indication: METASTASES TO BONE
     Dosage: 4MG EVERY 4 WEEKS
     Route: 065
     Dates: start: 201209

REACTIONS (2)
  - Cardiotoxicity [Not Recovered/Not Resolved]
  - Neuropathy peripheral [Unknown]
